FAERS Safety Report 19133001 (Version 1)
Quarter: 2021Q2

REPORT INFORMATION
  Report Type: Spontaneous
  Country: US (occurrence: US)
  Receive Date: 20210413
  Receipt Date: 20210413
  Transmission Date: 20210717
  Serious: Yes (Hospitalization)
  Sender: FDA-Public Use
  Company Number: None

PATIENT
  Age: 69 Year
  Sex: Male

DRUGS (1)
  1. TALTZ [Suspect]
     Active Substance: IXEKIZUMAB
     Route: 058
     Dates: start: 20210308, end: 202103

REACTIONS (4)
  - Hypothermia [None]
  - Dehydration [None]
  - Burns third degree [None]
  - Condition aggravated [None]

NARRATIVE: CASE EVENT DATE: 20210315
